FAERS Safety Report 19936246 (Version 1)
Quarter: 2021Q4

REPORT INFORMATION
  Report Type: Spontaneous
  Country: US (occurrence: US)
  Receive Date: 20211008
  Receipt Date: 20211008
  Transmission Date: 20220304
  Serious: No
  Sender: FDA-Public Use
  Company Number: US-KALEO, INC.-2021KL000078

PATIENT
  Age: 13 Year
  Sex: Female

DRUGS (2)
  1. AUVI-Q [Suspect]
     Active Substance: EPINEPHRINE
     Indication: Anaphylactic reaction
     Dates: start: 20210528, end: 20210528
  2. AUVI-Q [Suspect]
     Active Substance: EPINEPHRINE
     Dates: start: 20210602, end: 20210602

REACTIONS (7)
  - Injection site irritation [Recovered/Resolved]
  - Injection site pruritus [Recovered/Resolved]
  - Abdominal pain upper [Unknown]
  - Expired product administered [Recovered/Resolved]
  - Injection site haemorrhage [Recovered/Resolved]
  - Injection site erythema [Recovered/Resolved]
  - Nausea [Unknown]
